FAERS Safety Report 17872507 (Version 1)
Quarter: 2020Q2

REPORT INFORMATION
  Report Type: Spontaneous
  Country: US (occurrence: US)
  Receive Date: 20200608
  Receipt Date: 20200608
  Transmission Date: 20200714
  Serious: Yes (Death, Hospitalization, Other)
  Sender: FDA-Public Use
  Company Number: US-PFIZER INC-2020222214

PATIENT
  Age: 79 Year
  Sex: Male
  Weight: 68.04 kg

DRUGS (1)
  1. VYNDAQEL [Suspect]
     Active Substance: TAFAMIDIS MEGLUMINE
     Indication: HEART RATE IRREGULAR
     Dosage: UNK UNK, DAILY
     Dates: start: 2018

REACTIONS (7)
  - Septic shock [Fatal]
  - Weight increased [Unknown]
  - Off label use [Unknown]
  - Gastrointestinal disorder [Fatal]
  - Swelling [Unknown]
  - Product use in unapproved indication [Unknown]
  - Large intestine perforation [Unknown]

NARRATIVE: CASE EVENT DATE: 2018
